FAERS Safety Report 19096881 (Version 1)
Quarter: 2021Q2

REPORT INFORMATION
  Report Type: Spontaneous
  Country: US (occurrence: US)
  Receive Date: 20210405
  Receipt Date: 20210405
  Transmission Date: 20210717
  Serious: No
  Sender: FDA-Public Use
  Company Number: None

PATIENT
  Age: 35 Year
  Sex: Female
  Weight: 84.8 kg

DRUGS (2)
  1. CASIRIVIMAB. [Suspect]
     Active Substance: CASIRIVIMAB
     Indication: COVID-19 TREATMENT
     Route: 041
     Dates: start: 20210330, end: 20210330
  2. IMDEVIMAB. [Suspect]
     Active Substance: IMDEVIMAB
     Indication: COVID-19 TREATMENT
     Route: 041
     Dates: start: 20210330, end: 20210330

REACTIONS (1)
  - Wrong patient received product [None]

NARRATIVE: CASE EVENT DATE: 20210330
